FAERS Safety Report 17108618 (Version 4)
Quarter: 2020Q1

REPORT INFORMATION
  Report Type: Report from Study
  Country: US (occurrence: US)
  Receive Date: 20191204
  Receipt Date: 20200214
  Transmission Date: 20200409
  Serious: Yes (Death, Hospitalization)
  Sender: FDA-Public Use
  Company Number: US-ROCHE-2485075

PATIENT
  Age: 75 Year
  Sex: Male
  Weight: 66 kg

DRUGS (2)
  1. ATEZOLIZUMAB. [Suspect]
     Active Substance: ATEZOLIZUMAB
     Indication: NON-RENAL CELL CARCINOMA OF KIDNEY
     Dosage: DATE OF MOST RECENT DOSE OF ATEZOLIZUMAB ADMINISTERED: 05/NOV/2019
     Route: 065
     Dates: start: 20180712
  2. BEVACIZUMAB. [Suspect]
     Active Substance: BEVACIZUMAB
     Indication: NON-RENAL CELL CARCINOMA OF KIDNEY
     Dosage: DATE OF MOST RECENT DOSE OF BEVACIZUMAB ADMINISTERED: 15/AUG/2019
     Route: 065
     Dates: start: 20180712

REACTIONS (5)
  - Endocarditis [Unknown]
  - Encephalitis viral [Fatal]
  - Confusional state [Not Recovered/Not Resolved]
  - Pyrexia [Unknown]
  - Tooth abscess [Unknown]

NARRATIVE: CASE EVENT DATE: 20191123
